FAERS Safety Report 10282876 (Version 2)
Quarter: 2014Q4

REPORT INFORMATION
  Report Type: Spontaneous
  Country: SE (occurrence: SE)
  Receive Date: 20140708
  Receipt Date: 20141121
  Transmission Date: 20150528
  Serious: Yes (Other)
  Sender: FDA-Public Use
  Company Number: SE-ROCHE-1430859

PATIENT
  Sex: Male

DRUGS (1)
  1. MABTHERA [Suspect]
     Active Substance: RITUXIMAB
     Indication: SARCOIDOSIS
     Route: 065

REACTIONS (3)
  - Off label use [Unknown]
  - Cognitive disorder [Unknown]
  - Panic disorder [Unknown]
